FAERS Safety Report 24038757 (Version 1)
Quarter: 2024Q3

REPORT INFORMATION
  Report Type: Spontaneous
  Country: JP (occurrence: JP)
  Receive Date: 20240702
  Receipt Date: 20240702
  Transmission Date: 20241016
  Serious: Yes (Other)
  Sender: ORGANON
  Company Number: JP-ORGANON-O2406JPN000022

PATIENT
  Age: 59 Year
  Sex: Female

DRUGS (1)
  1. REFLEX [Suspect]
     Active Substance: MIRTAZAPINE
     Indication: Depression
     Dosage: 15 MILLIGRAM, QD (ONCE DAILY)
     Route: 048
     Dates: start: 20240501, end: 20240502

REACTIONS (2)
  - Loss of consciousness [Recovered/Resolved]
  - Contusion [Recovered/Resolved]

NARRATIVE: CASE EVENT DATE: 20240501
